FAERS Safety Report 16285786 (Version 1)
Quarter: 2019Q2

REPORT INFORMATION
  Report Type: Spontaneous
  Country: FR (occurrence: FR)
  Receive Date: 20190508
  Receipt Date: 20190508
  Transmission Date: 20190711
  Serious: Yes (Hospitalization)
  Sender: FDA-Public Use
  Company Number: FR-ASTRAZENECA-2019SE65900

PATIENT
  Age: 77 Year
  Sex: Female
  Weight: 66 kg

DRUGS (10)
  1. VANCOMYCIN [Suspect]
     Active Substance: VANCOMYCIN
     Indication: INFECTION
     Route: 041
     Dates: start: 20190225, end: 20190326
  2. CORDARONE [Suspect]
     Active Substance: AMIODARONE HYDROCHLORIDE
     Route: 041
     Dates: start: 20190131, end: 20190301
  3. ROSUVASTATIN. [Suspect]
     Active Substance: ROSUVASTATIN
     Route: 048
     Dates: start: 20190218, end: 20190318
  4. METRONIDAZOLE. [Suspect]
     Active Substance: METRONIDAZOLE
     Route: 041
     Dates: start: 20190225, end: 20190306
  5. PANTOPRAZOLE [Suspect]
     Active Substance: PANTOPRAZOLE
     Indication: LARGE INTESTINAL ULCER
     Route: 041
     Dates: start: 20190305, end: 20190314
  6. DOLIPRANE [Suspect]
     Active Substance: ACETAMINOPHEN
     Route: 048
     Dates: start: 20190309, end: 20190313
  7. ECONAZOLE. [Suspect]
     Active Substance: ECONAZOLE NITRATE
     Route: 061
     Dates: start: 20190206, end: 20190318
  8. PIPERACILLINE TAZOBACTAM MYLAN [Suspect]
     Active Substance: PIPERACILLIN SODIUM\TAZOBACTAM SODIUM
     Indication: INFECTION
     Route: 041
     Dates: start: 20190227, end: 20190405
  9. ASPIRINE [Suspect]
     Active Substance: ASPIRIN
     Route: 065
     Dates: start: 20190222, end: 20190307
  10. HEPARIN SODIUM. [Suspect]
     Active Substance: HEPARIN SODIUM
     Route: 041
     Dates: start: 20190129, end: 20190307

REACTIONS (4)
  - Eosinophilia [Unknown]
  - Rash maculo-papular [Not Recovered/Not Resolved]
  - Cholestasis [Not Recovered/Not Resolved]
  - Drug reaction with eosinophilia and systemic symptoms [Not Recovered/Not Resolved]

NARRATIVE: CASE EVENT DATE: 20190309
